FAERS Safety Report 5130140-3 (Version None)
Quarter: 2006Q4

REPORT INFORMATION
  Report Type: 
  Country: None (occurrence: None)
  Receive Date: 20061013
  Receipt Date: 20061002
  Transmission Date: 20070319
  Serious: Yes (Hospitalization, Other)
  Sender: FDA-Public Use
  Company Number: 2006-02444

PATIENT
  Age: 68 Year
  Sex: Female
  Weight: 51.5 kg

DRUGS (9)
  1. VELCADE [Suspect]
     Indication: MULTIPLE MYELOMA
     Dosage: 1.30 MG/M2
     Dates: start: 20060822, end: 20060901
  2. DOXIL [Suspect]
     Indication: MULTIPLE MYELOMA
     Dosage: 15.00 MG/M2
     Dates: start: 20060822, end: 20060829
  3. ESCITALOPRAM OXALATE [Concomitant]
  4. DEXAMETHASONE TAB [Concomitant]
  5. FLUCONAZOLE [Concomitant]
  6. ACYCLOVIR [Concomitant]
  7. MORPHINE [Concomitant]
  8. RANITIDINE [Concomitant]
  9. COMPAZINE [Concomitant]

REACTIONS (18)
  - BLOOD LACTATE DEHYDROGENASE INCREASED [None]
  - BLOOD SODIUM DECREASED [None]
  - BLOOD UREA INCREASED [None]
  - CONFUSIONAL STATE [None]
  - CONVULSION [None]
  - CYTOMEGALOVIRUS OESOPHAGITIS [None]
  - DRUG TOXICITY [None]
  - DYSPHAGIA [None]
  - ENCEPHALITIS CYTOMEGALOVIRUS [None]
  - HAEMATOCRIT DECREASED [None]
  - HAEMOGLOBIN DECREASED [None]
  - LYMPHOCYTE COUNT DECREASED [None]
  - NEUROTOXICITY [None]
  - ODYNOPHAGIA [None]
  - OESOPHAGEAL CANDIDIASIS [None]
  - OESOPHAGEAL HAEMORRHAGE [None]
  - PLATELET COUNT DECREASED [None]
  - WHITE BLOOD CELL COUNT DECREASED [None]
